FAERS Safety Report 7880869-9 (Version None)
Quarter: 2011Q4

REPORT INFORMATION
  Report Type: 
  Country: None (occurrence: None)
  Receive Date: 20111101
  Receipt Date: 20111017
  Transmission Date: 20120403
  Serious: Yes (Hospitalization)
  Sender: FDA-Public Use
  Company Number: US-WATSON-2011-17638

PATIENT
  Age: 51 Year
  Sex: Male

DRUGS (2)
  1. METFORMIN HCL [Suspect]
     Indication: DIABETES MELLITUS
     Dosage: UNK
     Route: 065
  2. OXYCODONE HCL AND ACETAMINOPHEN [Suspect]
     Dosage: UNKNOWN
     Route: 065

REACTIONS (3)
  - LACTIC ACIDOSIS [None]
  - WRONG DRUG ADMINISTERED [None]
  - ACCIDENTAL OVERDOSE [None]
